FAERS Safety Report 5807967-5 (Version None)
Quarter: 2008Q3

REPORT INFORMATION
  Report Type: 
  Country: None (occurrence: None)
  Receive Date: 20080711
  Receipt Date: 20080707
  Transmission Date: 20090109
  Serious: Yes (Death)
  Sender: FDA-Public Use
  Company Number: UG-GILEAD-2008-0017105

PATIENT

DRUGS (3)
  1. EMTRIVA [Suspect]
     Indication: HIV INFECTION
     Route: 064
     Dates: start: 20071107, end: 20080516
  2. KALETRA [Suspect]
     Indication: HIV INFECTION
     Route: 064
     Dates: start: 20070503, end: 20080516
  3. ZIDOVUDINE [Suspect]
     Indication: HIV INFECTION
     Route: 064
     Dates: start: 20071107, end: 20080516

REACTIONS (1)
  - DEATH NEONATAL [None]
